FAERS Safety Report 5848249-5 (Version None)
Quarter: 2008Q3

REPORT INFORMATION
  Report Type: 
  Country: None (occurrence: None)
  Receive Date: 20080818
  Receipt Date: 20080811
  Transmission Date: 20090109
  Serious: Yes (Other)
  Sender: FDA-Public Use
  Company Number: JP-BRISTOL-MYERS SQUIBB COMPANY-14296685

PATIENT
  Age: 77 Year
  Sex: Female

DRUGS (10)
  1. CEFEPIME [Suspect]
     Indication: FEBRILE NEUTROPENIA
  2. CIPROFLOXACIN [Suspect]
     Indication: FEBRILE NEUTROPENIA
  3. ALLOPURINOL [Suspect]
     Indication: PROPHYLAXIS
  4. CYTARABINE [Suspect]
     Indication: ACUTE MONOCYTIC LEUKAEMIA
  5. IDARUBICIN HCL [Suspect]
     Indication: ACUTE MONOCYTIC LEUKAEMIA
  6. TOSUFLOXACIN [Suspect]
     Indication: FEBRILE NEUTROPENIA
  7. FLUCONAZOLE [Suspect]
     Indication: FEBRILE NEUTROPENIA
  8. VANCOMYCIN [Suspect]
     Indication: FEBRILE NEUTROPENIA
  9. MEROPENEM [Suspect]
     Indication: FEBRILE NEUTROPENIA
  10. MICAFUNGIN SODIUM [Suspect]
     Indication: FEBRILE NEUTROPENIA

REACTIONS (1)
  - DRUG RASH WITH EOSINOPHILIA AND SYSTEMIC SYMPTOMS [None]
